FAERS Safety Report 7674236-0 (Version None)
Quarter: 2011Q3

REPORT INFORMATION
  Report Type: 
  Country: None (occurrence: None)
  Receive Date: 20110810
  Receipt Date: 20110801
  Transmission Date: 20111222
  Serious: Yes (Hospitalization, Other)
  Sender: FDA-Public Use
  Company Number: US-ELI_LILLY_AND_COMPANY-US200906005667

PATIENT
  Sex: Female
  Weight: 78.005 kg

DRUGS (10)
  1. KAYEXALATE [Concomitant]
     Dosage: UNK, UNKNOWN
  2. BYETTA [Suspect]
     Dosage: 10 UG, UNKNOWN
     Dates: start: 20080701, end: 20080801
  3. DIOVAN [Concomitant]
     Dosage: UNK, DAILY (1/D)
     Route: 048
  4. LORATADINE [Concomitant]
     Dosage: 10 MG, DAILY (1/D)
     Route: 048
  5. MOBIC [Concomitant]
     Dosage: 7.5 MG, DAILY (1/D)
     Route: 048
  6. URSODIOL [Concomitant]
     Dosage: 300 MG, 2/D
  7. ALPRAZOLAM [Concomitant]
     Dosage: 2.5 MG, DAILY (1/D)
  8. SINGULAIR [Concomitant]
     Dosage: 10 MG, DAILY (1/D)
     Route: 048
  9. METFORMIN HCL [Concomitant]
     Indication: DIABETES MELLITUS
     Dosage: 1000 MG, 2/D
     Route: 048
  10. LOVASTATIN [Concomitant]
     Dosage: 20 MG, EACH EVENING
     Route: 048

REACTIONS (4)
  - RENAL FAILURE ACUTE [None]
  - PANCREATITIS [None]
  - BLINDNESS TRANSIENT [None]
  - FUNCTIONAL GASTROINTESTINAL DISORDER [None]
